FAERS Safety Report 21540788 (Version 3)
Quarter: 2023Q4

REPORT INFORMATION
  Report Type: Spontaneous
  Country: US (occurrence: US)
  Receive Date: 20221102
  Receipt Date: 20231116
  Transmission Date: 20240110
  Serious: No
  Sender: FDA-Public Use
  Company Number: US-TEVA-2022-US-2818419

PATIENT
  Sex: Female

DRUGS (3)
  1. QNASL [Suspect]
     Active Substance: BECLOMETHASONE DIPROPIONATE
     Indication: Product used for unknown indication
     Dosage: NASAL AEROSOL, 80 MILLIGRAM
     Dates: start: 2014
  2. QNASL [Suspect]
     Active Substance: BECLOMETHASONE DIPROPIONATE
     Dosage: NASAL AEROSOL, 80 MILLIGRAM
     Dates: start: 2014
  3. QNASL [Suspect]
     Active Substance: BECLOMETHASONE DIPROPIONATE
     Dosage: NASAL AEROSOL, 80 MILLIGRAM

REACTIONS (7)
  - Headache [Unknown]
  - Nasal congestion [Unknown]
  - Device failure [Unknown]
  - Device malfunction [Unknown]
  - Sinusitis [Recovered/Resolved]
  - Product availability issue [Unknown]
  - Bronchitis [Unknown]
